FAERS Safety Report 5521085-5 (Version None)
Quarter: 2007Q4

REPORT INFORMATION
  Report Type: 
  Country: None (occurrence: None)
  Receive Date: 20071115
  Receipt Date: 20071101
  Transmission Date: 20080405
  Serious: No
  Sender: FDA-Public Use
  Company Number: TPA2006A01793

PATIENT
  Age: 75 Year
  Sex: Male
  Weight: 99.7913 kg

DRUGS (8)
  1. ROZEREM [Suspect]
     Indication: INSOMNIA
     Dosage: 8 MG, HS, PER ORAL; 2 TABS, HS, PER ORAL; 8 MG, HS, PER ORAL; 2 TABS, HS, PER ORAL;
     Route: 048
     Dates: end: 20071030
  2. ROZEREM [Suspect]
     Indication: INSOMNIA
     Dosage: 8 MG, HS, PER ORAL; 2 TABS, HS, PER ORAL; 8 MG, HS, PER ORAL; 2 TABS, HS, PER ORAL;
     Route: 048
     Dates: start: 20060912
  3. ROZEREM [Suspect]
     Indication: INSOMNIA
     Dosage: 8 MG, HS, PER ORAL; 2 TABS, HS, PER ORAL; 8 MG, HS, PER ORAL; 2 TABS, HS, PER ORAL;
     Route: 048
     Dates: start: 20061031
  4. ROZEREM [Suspect]
     Indication: INSOMNIA
     Dosage: 8 MG, HS, PER ORAL; 2 TABS, HS, PER ORAL; 8 MG, HS, PER ORAL; 2 TABS, HS, PER ORAL;
     Route: 048
     Dates: start: 20071001
  5. ADVIL PM (DIPHENHYDRAMINE) [Concomitant]
  6. VERAPAMIL [Concomitant]
  7. TYLENOL PM (DIPHENHYDRAMINE, PARACETAMOL) [Concomitant]
  8. ADVIL PM (IBUPROFEN) [Concomitant]

REACTIONS (7)
  - CONDITION AGGRAVATED [None]
  - DRUG EFFECT DECREASED [None]
  - INCORRECT DOSE ADMINISTERED [None]
  - MEMORY IMPAIRMENT [None]
  - MIDDLE INSOMNIA [None]
  - SOMNOLENCE [None]
  - TREATMENT NONCOMPLIANCE [None]
